FAERS Safety Report 7576372-6 (Version None)
Quarter: 2011Q2

REPORT INFORMATION
  Report Type: 
  Country: None (occurrence: None)
  Receive Date: 20110628
  Receipt Date: 20100922
  Transmission Date: 20111010
  Serious: Yes (Other)
  Sender: FDA-Public Use
  Company Number: US-BAYER-201029587NA

PATIENT
  Age: 28 Year
  Sex: Female
  Weight: 90.703 kg

DRUGS (5)
  1. PREVACID [Concomitant]
  2. PHENTERMINE [Concomitant]
  3. REGLAN [Concomitant]
     Dosage: UNK
     Dates: start: 20070101
  4. ANTI-ASTHMATICS [Concomitant]
  5. YAZ [Suspect]
     Indication: PRODUCT USED FOR UNKNOWN INDICATION
     Dosage: UNK
     Dates: start: 20071008, end: 20080201

REACTIONS (4)
  - BILIARY COLIC [None]
  - CHOLECYSTITIS CHRONIC [None]
  - ABDOMINAL PAIN UPPER [None]
  - CHOLELITHIASIS [None]
